FAERS Safety Report 11935263 (Version 1)
Quarter: 2016Q1

REPORT INFORMATION
  Report Type: Spontaneous
  Country: BR (occurrence: BR)
  Receive Date: 20160121
  Receipt Date: 20160121
  Transmission Date: 20160526
  Serious: Yes (Other)
  Sender: FDA-Public Use
  Company Number: BR-GLAXOSMITHKLINE-BR2016GSK007163

PATIENT
  Sex: Female

DRUGS (1)
  1. ZINNAT [Suspect]
     Active Substance: CEFUROXIME AXETIL
     Indication: PNEUMONIA
     Dosage: UNK
     Dates: start: 20151216

REACTIONS (5)
  - Incorrect dose administered [Unknown]
  - Product quality issue [Unknown]
  - Pneumonia [Unknown]
  - Drug ineffective [Unknown]
  - Product physical consistency issue [Unknown]
